FAERS Safety Report 5834087-6 (Version None)
Quarter: 2008Q3

REPORT INFORMATION
  Report Type: 
  Country: None (occurrence: None)
  Receive Date: 20080805
  Receipt Date: 20080731
  Transmission Date: 20090109
  Serious: Yes (Hospitalization, Other)
  Sender: FDA-Public Use
  Company Number: ES-BRISTOL-MYERS SQUIBB COMPANY-14287700

PATIENT
  Age: 66 Year
  Sex: Female

DRUGS (4)
  1. METFORMIN HCL [Suspect]
     Indication: TYPE 2 DIABETES MELLITUS
  2. ENALAPRIL MALEATE [Suspect]
  3. RISEDRONATE SODIUM [Suspect]
     Indication: OSTEOPOROSIS
  4. COUTAREA LATIFLORA [Suspect]
     Indication: HYPOGLYCAEMIA

REACTIONS (1)
  - HEPATITIS [None]
